FAERS Safety Report 6607047-5 (Version None)
Quarter: 2010Q1

REPORT INFORMATION
  Report Type: 
  Country: None (occurrence: None)
  Receive Date: 20100219
  Receipt Date: 20080619
  Transmission Date: 20100710
  Serious: Yes (Death, Other)
  Sender: FDA-Public Use
  Company Number: 2009-2682

PATIENT
  Age: 76 Year
  Sex: Male

DRUGS (1)
  1. APOKYN [Suspect]
     Indication: PARKINSON'S DISEASE
     Dosage: (0.3 MG, AS REQUIRED), SUBCUTANEOUS
     Route: 058

REACTIONS (1)
  - DEMENTIA [None]
